FAERS Safety Report 6675623 (Version 18)
Quarter: 2013Q3

REPORT INFORMATION
  Report Type: Spontaneous
  Country: US (occurrence: US)
  Receive Date: 20080623
  Receipt Date: 20130712
  Transmission Date: 20140515
  Serious: Yes (Hospitalization, Congenital Anomaly, Other)
  Sender: FDA-Public Use
  Company Number: US-PFIZER INC-2008049855

PATIENT
  Sex: Male
  Weight: 3 kg

DRUGS (8)
  1. ZOLOFT [Suspect]
     Indication: DEPRESSION
     Dosage: 100 MG, 1X/DAY
     Route: 064
     Dates: start: 2005
  2. ORTHO TRI-CYCLEN [Concomitant]
     Dosage: UNK
     Route: 064
  3. FLONASE [Concomitant]
     Dosage: UNK
     Route: 064
  4. MONTELUKAST [Concomitant]
     Dosage: 10 MG, 1X/DAY
     Route: 064
  5. ADVAIR [Concomitant]
     Dosage: 500/50MCG
     Route: 064
  6. SALBUTAMOL [Concomitant]
     Dosage: UNK
     Route: 064
  7. TYLENOL [Concomitant]
     Dosage: UNK
     Route: 064
  8. MOTRIN [Concomitant]
     Dosage: UNK
     Route: 064

REACTIONS (18)
  - Foetal exposure during pregnancy [Unknown]
  - Neonatal respiratory distress syndrome [Unknown]
  - Persistent foetal circulation [Unknown]
  - Convulsion [Not Recovered/Not Resolved]
  - Kidney enlargement [Unknown]
  - Cerebral haemorrhage [Unknown]
  - Pneumonia [Not Recovered/Not Resolved]
  - Cerebral palsy [Unknown]
  - Hypoxic-ischaemic encephalopathy [Unknown]
  - Intraventricular haemorrhage [Unknown]
  - Atrial septal defect [Unknown]
  - Tricuspid valve incompetence [Unknown]
  - Hemiparesis [Recovering/Resolving]
  - Patent ductus arteriosus [Unknown]
  - Congenital anomaly [Unknown]
  - Developmental delay [Unknown]
  - Scoliosis [Unknown]
  - Gastrooesophageal reflux disease [Unknown]
